FAERS Safety Report 25853331 (Version 2)
Quarter: 2025Q4

REPORT INFORMATION
  Report Type: Report from Study
  Country: CN (occurrence: CN)
  Receive Date: 20250926
  Receipt Date: 20251003
  Transmission Date: 20260118
  Serious: Yes (Life-Threatening)
  Sender: PFIZER
  Company Number: CN-TAKEDA-2023TUS029679

PATIENT
  Age: 58 Year
  Sex: Male
  Weight: 68 kg

DRUGS (23)
  1. ADCETRIS [Suspect]
     Active Substance: BRENTUXIMAB VEDOTIN
     Indication: Anaplastic large cell lymphoma T- and null-cell types
     Dosage: 100 MILLIGRAM, Q3WEEKS
     Route: 041
     Dates: start: 20230309
  2. METFORMIN HYDROCHLORIDE [Concomitant]
     Active Substance: METFORMIN HYDROCHLORIDE
     Indication: Type 2 diabetes mellitus
     Dosage: 0.25 GRAM, TID
     Route: 048
     Dates: start: 202211
  3. PALONOSETRON HYDROCHLORIDE [Concomitant]
     Active Substance: PALONOSETRON HYDROCHLORIDE
     Indication: Prophylaxis
     Dosage: 0.25 GRAM, QD
     Route: 042
     Dates: start: 20230309, end: 20230309
  4. ONDANSETRON HYDROCHLORIDE [Concomitant]
     Active Substance: ONDANSETRON HYDROCHLORIDE
     Indication: Prophylaxis
     Dosage: 8 MILLIGRAM, BID
     Route: 048
     Dates: start: 20230309, end: 20230410
  5. DISODIUM CANTHARIDINATE [Concomitant]
     Indication: Adjuvant therapy
     Dosage: 10 MILLILITER, QD
     Route: 042
     Dates: start: 20230309, end: 20230313
  6. DISODIUM CANTHARIDINATE [Concomitant]
     Dosage: 10 MILLILITER, QD
     Route: 042
     Dates: start: 20230330, end: 20230403
  7. INSULIN NOS [Concomitant]
     Active Substance: INSULIN NOS
     Indication: Type 2 diabetes mellitus
     Dosage: 3 INTERNATIONAL UNIT, QD
     Route: 042
     Dates: start: 20230309, end: 20230313
  8. SODIUM BICARBONATE [Concomitant]
     Active Substance: SODIUM BICARBONATE
     Dosage: 40 MILLILITER, QD
     Route: 042
     Dates: start: 20230309, end: 20230313
  9. ROXATIDINE ACETATE HYDROCHLORIDE [Concomitant]
     Active Substance: ROXATIDINE ACETATE HYDROCHLORIDE
     Indication: Antacid therapy
     Dosage: 75 MILLIGRAM, BID
     Route: 042
     Dates: start: 20230309, end: 20230313
  10. CALCIUM CARBONATE\CHOLECALCIFEROL [Concomitant]
     Active Substance: CALCIUM CARBONATE\CHOLECALCIFEROL
     Indication: Prophylaxis
     Dosage: UNK, BID
     Route: 048
     Dates: start: 20230309, end: 20230313
  11. CALCIUM CARBONATE\CHOLECALCIFEROL [Concomitant]
     Active Substance: CALCIUM CARBONATE\CHOLECALCIFEROL
     Dosage: 600 MILLIGRAM, QD
     Route: 048
     Dates: start: 20230309
  12. DIPHENHYDRAMINE HYDROCHLORIDE [Concomitant]
     Active Substance: DIPHENHYDRAMINE HYDROCHLORIDE
     Indication: Prophylaxis
     Dosage: 20 MILLIGRAM, QD
     Route: 042
     Dates: start: 20230309, end: 20230309
  13. DEXAMETHASONE SODIUM PHOSPHATE [Concomitant]
     Active Substance: DEXAMETHASONE SODIUM PHOSPHATE
     Indication: Prophylaxis
     Dosage: 5 MILLIGRAM, QD
     Route: 042
     Dates: start: 20230309, end: 20230309
  14. CYCLOPHOSPHAMIDE [Concomitant]
     Active Substance: CYCLOPHOSPHAMIDE
     Indication: Anaplastic large cell lymphoma T- and null-cell types
     Dosage: 1.2 MILLIGRAM, QD
     Route: 042
     Dates: start: 20230310, end: 20230310
  15. PIRARUBICIN HYDROCHLORIDE [Concomitant]
     Active Substance: PIRARUBICIN HYDROCHLORIDE
     Indication: Anaplastic large cell lymphoma T- and null-cell types
     Dosage: 80 MILLIGRAM, QD
     Route: 042
     Dates: start: 20230310, end: 20230310
  16. ETOPOSIDE [Concomitant]
     Active Substance: ETOPOSIDE
     Indication: Anaplastic large cell lymphoma T- and null-cell types
     Dosage: 0.1 GRAM, QD
     Route: 042
     Dates: start: 20230310, end: 20230312
  17. PREDNISONE ACETATE [Concomitant]
     Active Substance: PREDNISONE ACETATE
     Indication: Anaplastic large cell lymphoma T- and null-cell types
     Dosage: 30 MG, BID
     Route: 048
     Dates: start: 20230310, end: 20230314
  18. PREDNISONE ACETATE [Concomitant]
     Active Substance: PREDNISONE ACETATE
     Dosage: 40 MILLIGRAM, QD
     Route: 048
     Dates: start: 20230310, end: 20230314
  19. CALCIUM POLYCARBOPHIL [Concomitant]
     Active Substance: CALCIUM POLYCARBOPHIL
     Indication: Constipation
     Dosage: 1 GRAM, TID
     Route: 048
     Dates: start: 20230310, end: 20230313
  20. KUSHEN [Concomitant]
     Indication: Adjuvant therapy
     Dosage: 20 MILLILITER, QD
     Route: 042
     Dates: start: 20230209, end: 20230313
  21. MESNA [Concomitant]
     Active Substance: MESNA
     Indication: Prophylaxis
     Dosage: 1.2 GRAM, QD
     Route: 042
     Dates: start: 20230310, end: 20230310
  22. BIFID TRIPLE VIABLE [Concomitant]
     Dosage: 420 MILLIGRAM, BID
     Route: 065
     Dates: start: 20230313
  23. COIX LACRYMA-JOBI VAR. MA-YUEN SEED [Concomitant]
     Active Substance: COIX LACRYMA-JOBI VAR. MA-YUEN SEED
     Indication: Adjuvant therapy
     Dosage: 20 GRAM, QD
     Route: 042
     Dates: start: 20230330, end: 20230403

REACTIONS (11)
  - Neutrophil count decreased [Unknown]
  - White blood cell count decreased [Unknown]
  - Lymphocyte count decreased [Recovered/Resolved]
  - Hypoaesthesia [Recovered/Resolved]
  - Nausea [Recovered/Resolved]
  - Anaemia [Unknown]
  - Diarrhoea [Recovered/Resolved]
  - Inadequate diet [Recovered/Resolved]
  - Beta 2 microglobulin increased [Unknown]
  - Blood lactate dehydrogenase increased [Unknown]
  - Off label use [Recovered/Resolved]

NARRATIVE: CASE EVENT DATE: 20230301
